FAERS Safety Report 6006282-7 (Version None)
Quarter: 2008Q4

REPORT INFORMATION
  Report Type: 
  Country: None (occurrence: None)
  Receive Date: 20081216
  Receipt Date: 20081216
  Transmission Date: 20090506
  Serious: Yes (Other)
  Sender: FDA-Public Use
  Company Number: None

PATIENT
  Age: 35 Year
  Sex: Female
  Weight: 105.6881 kg

DRUGS (5)
  1. PAXIL [Suspect]
     Indication: ANXIETY
     Dosage: 60MG DOWN TO 40MG IN 2006 DAILY PO
     Route: 048
     Dates: start: 19960910, end: 20081118
  2. PAXIL [Suspect]
     Indication: DEPRESSION
     Dosage: 60MG DOWN TO 40MG IN 2006 DAILY PO
     Route: 048
     Dates: start: 19960910, end: 20081118
  3. PAXIL [Suspect]
     Indication: OBSESSIVE-COMPULSIVE DISORDER
     Dosage: 60MG DOWN TO 40MG IN 2006 DAILY PO
     Route: 048
     Dates: start: 19960910, end: 20081118
  4. PAXIL [Suspect]
     Indication: PANIC REACTION
     Dosage: 60MG DOWN TO 40MG IN 2006 DAILY PO
     Route: 048
     Dates: start: 19960910, end: 20081118
  5. PAXIL [Suspect]
     Indication: DRUG WITHDRAWAL SYNDROME
     Dosage: 40MG DOWN TO 20MG 11-17-08 DAILY PO
     Route: 048
     Dates: start: 20081215, end: 20081215

REACTIONS (13)
  - ANXIETY [None]
  - BIPOLAR DISORDER [None]
  - CRYING [None]
  - DEPRESSION [None]
  - DIARRHOEA [None]
  - DIZZINESS [None]
  - DRUG ABUSER [None]
  - DRUG EFFECT DECREASED [None]
  - DRUG WITHDRAWAL SYNDROME [None]
  - OBSESSIVE-COMPULSIVE DISORDER [None]
  - PANIC REACTION [None]
  - PARAESTHESIA [None]
  - PYREXIA [None]
